FAERS Safety Report 7305014-X (Version None)
Quarter: 2011Q1

REPORT INFORMATION
  Report Type: 
  Country: None (occurrence: None)
  Receive Date: 20110222
  Receipt Date: 20100712
  Transmission Date: 20110831
  Serious: No
  Sender: FDA-Public Use
  Company Number: US-PFIZER INC-2010087367

PATIENT
  Age: 70 Year
  Sex: Male

DRUGS (1)
  1. XALATAN [Suspect]
     Indication: GLAUCOMA
     Dosage: UNK, ONE DROP IN EACH EYE
     Route: 047
     Dates: start: 20080101

REACTIONS (3)
  - LOW DENSITY LIPOPROTEIN INCREASED [None]
  - TREMOR [None]
  - EYE IRRITATION [None]
